FAERS Safety Report 5449955-7 (Version None)
Quarter: 2007Q3

REPORT INFORMATION
  Report Type: 
  Country: None (occurrence: None)
  Receive Date: 20070912
  Receipt Date: 20070903
  Transmission Date: 20080115
  Serious: Yes (Other)
  Sender: FDA-Public Use
  Company Number: DE-JNJFOC-20070900155

PATIENT
  Sex: Female

DRUGS (3)
  1. IMODIUM [Suspect]
     Indication: DRUG USE FOR UNKNOWN INDICATION
  2. RISPERDAL [Concomitant]
     Indication: DRUG USE FOR UNKNOWN INDICATION
  3. ARICEPT [Concomitant]
     Indication: DRUG USE FOR UNKNOWN INDICATION

REACTIONS (1)
  - PARKINSONISM [None]
